FAERS Safety Report 7176508-5 (Version None)
Quarter: 2010Q4

REPORT INFORMATION
  Report Type: 
  Country: None (occurrence: None)
  Receive Date: 20101220
  Receipt Date: 20101214
  Transmission Date: 20110411
  Serious: Yes (Other)
  Sender: FDA-Public Use
  Company Number: BR-PFIZER INC-2010172263

PATIENT
  Age: 87 Year
  Sex: Male

DRUGS (5)
  1. LYRICA [Suspect]
     Indication: BACK PAIN
     Dosage: 150 MG, 1X/DAY, AT NIGHT
     Route: 048
     Dates: start: 20101211
  2. VALSARTAN [Concomitant]
     Dosage: UNK
  3. DEPAKOTE [Concomitant]
     Indication: SYNCOPE
     Dosage: 250 MG, 2X/DAY
  4. SOMALGIN [Concomitant]
     Dosage: UNK
  5. CARDIZEM [Concomitant]
     Dosage: UNK

REACTIONS (5)
  - BACK PAIN [None]
  - DEPRESSED MOOD [None]
  - DRUG PRESCRIBING ERROR [None]
  - PAIN IN EXTREMITY [None]
  - SOMNOLENCE [None]
